FAERS Safety Report 4587665-9 (Version None)
Quarter: 2005Q1

REPORT INFORMATION
  Report Type: 
  Country: None (occurrence: None)
  Receive Date: 20050215
  Receipt Date: 20030520
  Transmission Date: 20050727
  Serious: Yes (Hospitalization)
  Sender: FDA-Public Use
  Company Number: 173178

PATIENT
  Age: 61 Year
  Sex: Female
  Weight: 90.7194 kg

DRUGS (4)
  1. AVONEX [Suspect]
     Indication: MULTIPLE SCLEROSIS
     Dosage: 30 UG; QW; IM
     Route: 029
     Dates: start: 20020101
  2. MEDICATION (NOS) [Concomitant]
  3. VITAMIN CAP [Concomitant]
  4. METFORMIN HCL [Concomitant]

REACTIONS (1)
  - CEREBROVASCULAR ACCIDENT [None]
